FAERS Safety Report 19923978 (Version 1)
Quarter: 2021Q4

REPORT INFORMATION
  Report Type: Spontaneous
  Country: US (occurrence: US)
  Receive Date: 20211005
  Receipt Date: 20211005
  Transmission Date: 20220303
  Serious: No
  Sender: FDA-Public Use
  Company Number: None

PATIENT

DRUGS (2)
  1. HEPARIN [Suspect]
     Active Substance: HEPARIN SODIUM
     Dosage: ?          OTHER DOSE:20,000 UNITS/500ML;OTHER ROUTE:IV BAG
  2. HEPARIN SODIUM [Suspect]
     Active Substance: HEPARIN SODIUM
     Dosage: ?          OTHER DOSE:1000UNITS/500ML;
     Route: 041

REACTIONS (3)
  - Product appearance confusion [None]
  - Circumstance or information capable of leading to medication error [None]
  - Wrong product administered [None]
